FAERS Safety Report 11070722 (Version 1)
Quarter: 2015Q2

REPORT INFORMATION
  Report Type: Spontaneous
  Country: SE (occurrence: SE)
  Receive Date: 20150427
  Receipt Date: 20150427
  Transmission Date: 20150821
  Serious: Yes (Hospitalization)
  Sender: FDA-Public Use
  Company Number: SE-TEVA-557350ISR

PATIENT
  Age: 30 Year
  Sex: Male

DRUGS (5)
  1. DIAZEPAM. [Suspect]
     Active Substance: DIAZEPAM
     Route: 048
  2. IKTORIVIL TABLETT [Concomitant]
  3. DEXOFEN 100 MG TABLETT [Concomitant]
  4. DOLCONTIN 200 MG DEPOTTABLETT [Concomitant]
     Route: 048
  5. XANOR [Concomitant]
     Active Substance: ALPRAZOLAM

REACTIONS (1)
  - Toxicity to various agents [Recovered/Resolved]
